FAERS Safety Report 9487254 (Version 1)
Quarter: 2013Q3

REPORT INFORMATION
  Report Type: Spontaneous
  Country: US (occurrence: US)
  Receive Date: 20130829
  Receipt Date: 20130829
  Transmission Date: 20140515
  Serious: Yes (Hospitalization)
  Sender: FDA-Public Use
  Company Number: US-BAYER-2013-104318

PATIENT
  Age: 33 Year
  Sex: Female

DRUGS (3)
  1. YAZ [Suspect]
     Indication: MENSTRUAL CYCLE MANAGEMENT
  2. XANAX [Concomitant]
  3. VICODIN [Concomitant]

REACTIONS (1)
  - Pulmonary embolism [None]
